FAERS Safety Report 12941583 (Version 1)
Quarter: 2016Q4

REPORT INFORMATION
  Report Type: Report from Study
  Country: US (occurrence: US)
  Receive Date: 20161115
  Receipt Date: 20161115
  Transmission Date: 20170207
  Serious: Yes (Other)
  Sender: FDA-Public Use
  Company Number: US-CORCEPT THERAPEUTICS INC.-US-2016CRT000705

PATIENT

DRUGS (1)
  1. KORLYM [Suspect]
     Active Substance: MIFEPRISTONE
     Indication: CUSHING^S SYNDROME
     Dosage: 300 MG, QD
     Route: 048
     Dates: start: 201510, end: 20161104

REACTIONS (7)
  - Cyst rupture [Unknown]
  - Uterine cyst [Unknown]
  - Uterine cervical laceration [Unknown]
  - Uterine polyp [Unknown]
  - Benign vaginal neoplasm [Unknown]
  - Vaginal discharge [Unknown]
  - Cervical cyst [Unknown]

NARRATIVE: CASE EVENT DATE: 201510
